FAERS Safety Report 8980131 (Version 2)
Quarter: 2013Q3

REPORT INFORMATION
  Report Type: Spontaneous
  Country: JP (occurrence: JP)
  Receive Date: 20121221
  Receipt Date: 20130728
  Transmission Date: 20140515
  Serious: Yes (Death, Disabling, Other)
  Sender: FDA-Public Use
  Company Number: PHHY2012JP116892

PATIENT
  Age: 60 Year
  Sex: Female

DRUGS (5)
  1. NEORAL [Suspect]
     Indication: DERMATOMYOSITIS
     Dosage: 150 MG, DAILY
     Route: 048
     Dates: start: 20120925, end: 20121220
  2. NEORAL [Suspect]
     Indication: INTERSTITIAL LUNG DISEASE
  3. NEORAL [Suspect]
     Indication: OFF LABEL USE
  4. PREDONINE [Concomitant]
  5. BACTRAMIN [Concomitant]

REACTIONS (4)
  - Interstitial lung disease [Fatal]
  - Dermatomyositis [Fatal]
  - Disease progression [Fatal]
  - Myelitis [Unknown]
